FAERS Safety Report 4979218-5 (Version None)
Quarter: 2006Q2

REPORT INFORMATION
  Report Type: 
  Country: None (occurrence: None)
  Receive Date: 20060421
  Receipt Date: 20060324
  Transmission Date: 20061013
  Serious: Yes (Life-Threatening)
  Sender: FDA-Public Use
  Company Number: 2006AC00570

PATIENT
  Age: 54 Year
  Sex: Male
  Weight: 82 kg

DRUGS (12)
  1. NEXIUM [Suspect]
     Indication: REFLUX OESOPHAGITIS
     Route: 048
  2. NEXIUM [Suspect]
     Route: 048
     Dates: start: 20060308
  3. COMBIZYM [Concomitant]
     Indication: GASTROINTESTINAL DISORDER
     Route: 048
     Dates: start: 19991001
  4. AERIUS [Concomitant]
     Indication: HYPERSENSITIVITY
     Route: 048
     Dates: start: 19990101
  5. BETAHISTINE [Concomitant]
     Indication: TINNITUS
     Route: 048
     Dates: start: 20030101
  6. ELTHYRONE [Concomitant]
     Indication: HYPOTHYROIDISM
     Route: 048
     Dates: start: 19971209
  7. DEPAKENE [Concomitant]
     Route: 048
     Dates: end: 20060201
  8. DEPAKENE [Concomitant]
     Route: 048
     Dates: start: 20060201, end: 20060323
  9. DEPAKENE [Concomitant]
     Route: 048
     Dates: start: 20060301
  10. RIVOTRIL [Concomitant]
  11. PROSTA URGENIN [Concomitant]
     Indication: DRUG THERAPY
  12. CYSTINE [Concomitant]
     Indication: MEDICAL DIET

REACTIONS (4)
  - EPILEPSY [None]
  - PRURITUS [None]
  - PRURITUS GENERALISED [None]
  - TINNITUS [None]
